FAERS Safety Report 6275214-9 (Version None)
Quarter: 2009Q3

REPORT INFORMATION
  Report Type: 
  Country: None (occurrence: None)
  Receive Date: 20090721
  Receipt Date: 20090514
  Transmission Date: 20100115
  Serious: No
  Sender: FDA-Public Use
  Company Number: US-BAYER-200920896NA

PATIENT
  Sex: Female

DRUGS (1)
  1. MIRENA [Suspect]
     Indication: CONTRACEPTION
     Route: 015
     Dates: start: 20090506, end: 20090513

REACTIONS (1)
  - INTRA-UTERINE CONTRACEPTIVE DEVICE EXPELLED [None]
